FAERS Safety Report 9957420 (Version 1)
Quarter: 2014Q1

REPORT INFORMATION
  Report Type: Report from Study
  Country: US (occurrence: US)
  Receive Date: 20140304
  Receipt Date: 20140304
  Transmission Date: 20141002
  Serious: No
  Sender: FDA-Public Use
  Company Number: US-ABBVIE-13P-163-1100139-00

PATIENT
  Sex: Female

DRUGS (7)
  1. HUMIRA [Suspect]
     Indication: RHEUMATOID ARTHRITIS
  2. METHOTREXATE [Concomitant]
     Indication: PRODUCT USED FOR UNKNOWN INDICATION
  3. TYLENOL PM EX-STRENGTH GEL TAB [Concomitant]
     Indication: PRODUCT USED FOR UNKNOWN INDICATION
  4. SM FLAX OIL [Concomitant]
     Indication: PRODUCT USED FOR UNKNOWN INDICATION
  5. CVS VITAMIN B-100 COMPLX TB [Concomitant]
     Indication: PRODUCT USED FOR UNKNOWN INDICATION
  6. CVS GLUCOSAMINE-CHONDR CAPLET [Concomitant]
     Indication: PRODUCT USED FOR UNKNOWN INDICATION
  7. CVS FOLIC ACID [Concomitant]
     Indication: PRODUCT USED FOR UNKNOWN INDICATION

REACTIONS (1)
  - Dermatitis contact [Recovering/Resolving]
